FAERS Safety Report 20198176 (Version 17)
Quarter: 2024Q4

REPORT INFORMATION
  Report Type: Report from Study
  Country: BR (occurrence: BR)
  Receive Date: 20211217
  Receipt Date: 20241226
  Transmission Date: 20250114
  Serious: Yes (Hospitalization, Other)
  Sender: GLAXOSMITHKLINE
  Company Number: BR-GLAXOSMITHKLINE-BR2021AMR204673

PATIENT

DRUGS (10)
  1. BELIMUMAB [Suspect]
     Active Substance: BELIMUMAB
     Indication: Systemic lupus erythematosus
     Dosage: 10 MG/KG, Q4W
     Route: 042
     Dates: start: 20210426
  2. BELIMUMAB [Suspect]
     Active Substance: BELIMUMAB
     Indication: Lupus nephritis
     Dosage: 120 MG, MO
     Route: 042
  3. BELIMUMAB [Suspect]
     Active Substance: BELIMUMAB
     Dosage: 720 MG, MO (6 X 120 MG)
     Route: 042
  4. BELIMUMAB [Suspect]
     Active Substance: BELIMUMAB
     Dosage: 2400 MG, MO (6 X 400 MG)
     Route: 042
  5. BELIMUMAB [Suspect]
     Active Substance: BELIMUMAB
     Dosage: UNK (6 X 120 MG)
     Route: 042
  6. BELIMUMAB [Suspect]
     Active Substance: BELIMUMAB
     Indication: Systemic lupus erythematosus
     Dosage: UNK (6 X 120MG)
  7. BELIMUMAB [Suspect]
     Active Substance: BELIMUMAB
     Indication: Lupus nephritis
  8. AZATHIOPRINE [Suspect]
     Active Substance: AZATHIOPRINE
     Indication: Product used for unknown indication
     Dosage: 50 MG, BID (2 TABLET EVERY DAY)
  9. PREDNISONE [Suspect]
     Active Substance: PREDNISONE
     Indication: Product used for unknown indication
     Dosage: 10 MG, QD (1 TABLET EVERY DAY)
  10. PREDNISONE [Suspect]
     Active Substance: PREDNISONE
     Dosage: 5 MG

REACTIONS (28)
  - Malaise [Recovered/Resolved]
  - Urinary tract infection [Not Recovered/Not Resolved]
  - Dysuria [Not Recovered/Not Resolved]
  - Pyrexia [Recovered/Resolved]
  - Urine odour abnormal [Recovered/Resolved]
  - Condition aggravated [Unknown]
  - Pyelonephritis [Unknown]
  - Immunodeficiency [Not Recovered/Not Resolved]
  - Systemic lupus erythematosus [Unknown]
  - Anaemia [Recovered/Resolved]
  - Platelet count decreased [Not Recovered/Not Resolved]
  - White blood cell count decreased [Unknown]
  - Candida infection [Unknown]
  - Weight increased [Not Recovered/Not Resolved]
  - COVID-19 [Unknown]
  - Rhinorrhoea [Unknown]
  - Dengue fever [Unknown]
  - Influenza [Unknown]
  - Pruritus [Unknown]
  - Abdominal pain lower [Not Recovered/Not Resolved]
  - Rhinitis [Unknown]
  - Platelet count decreased [Recovered/Resolved]
  - Asthenia [Not Recovered/Not Resolved]
  - Illness [Unknown]
  - Inappropriate schedule of product administration [Unknown]
  - Product dose omission issue [Unknown]
  - Intercepted medication error [Unknown]
  - Product storage error [Unknown]

NARRATIVE: CASE EVENT DATE: 20211101
